FAERS Safety Report 9996850 (Version 1)
Quarter: 2014Q1

REPORT INFORMATION
  Report Type: Spontaneous
  Country: FR (occurrence: FR)
  Receive Date: 20140311
  Receipt Date: 20140311
  Transmission Date: 20141002
  Serious: Yes (Hospitalization, Other)
  Sender: FDA-Public Use
  Company Number: FR-BAXTER-2014BAX010928

PATIENT
  Age: 80 Year
  Sex: Male

DRUGS (2)
  1. CHLORURE DE SODIUM 0.9% POUR CENT BAXTER, SOLUTION POUR PERFUSION EN P [Suspect]
     Indication: PRODUCT USED FOR UNKNOWN INDICATION
     Route: 058
     Dates: start: 20140106, end: 20140110
  2. TRIMETHOPRIM/SULFAMETHOXAZOLE [Concomitant]
     Indication: PROSTATITIS
     Route: 065
     Dates: start: 201312, end: 20140115

REACTIONS (3)
  - Dermo-hypodermitis [Recovered/Resolved]
  - Inflammation [Unknown]
  - Hyperthermia [Unknown]
